FAERS Safety Report 5790647-2 (Version None)
Quarter: 2008Q2

REPORT INFORMATION
  Report Type: 
  Country: None (occurrence: None)
  Receive Date: 20080626
  Receipt Date: 20080502
  Transmission Date: 20081010
  Serious: No
  Sender: FDA-Public Use
  Company Number: A0726026A

PATIENT
  Age: 65 Year
  Sex: Female

DRUGS (11)
  1. ALLI [Suspect]
  2. CARDIZEM LA [Concomitant]
  3. FUROSEMIDE [Concomitant]
  4. MELOXICAM [Concomitant]
  5. CARBINOXAMINE MALEATE [Concomitant]
  6. NASONEX [Concomitant]
  7. LIPITOR [Concomitant]
  8. RANITIDINE HCL [Concomitant]
  9. METOCLOPRAMIDE [Concomitant]
  10. ACIPHEX [Concomitant]
  11. ASPIRIN [Concomitant]

REACTIONS (1)
  - BREAST MASS [None]
